FAERS Safety Report 6342196-0 (Version None)
Quarter: 2009Q3

REPORT INFORMATION
  Report Type: 
  Country: None (occurrence: None)
  Receive Date: 20090904
  Receipt Date: 20090904
  Transmission Date: 20100115
  Serious: Yes (Other)
  Sender: FDA-Public Use
  Company Number: None

PATIENT
  Age: 38 Year
  Sex: Male

DRUGS (2)
  1. CLINDAMYCIN [Suspect]
     Indication: NECROTISING FASCIITIS STREPTOCOCCAL
  2. PENICILLIN [Suspect]
     Indication: NECROTISING FASCIITIS STREPTOCOCCAL

REACTIONS (3)
  - ACUTE GENERALISED EXANTHEMATOUS PUSTULOSIS [None]
  - PYREXIA [None]
  - WHITE BLOOD CELL COUNT INCREASED [None]
